FAERS Safety Report 8022792-5 (Version None)
Quarter: 2012Q1

REPORT INFORMATION
  Report Type: 
  Country: None (occurrence: None)
  Receive Date: 20120104
  Receipt Date: 20111226
  Transmission Date: 20120608
  Serious: Yes (Other)
  Sender: FDA-Public Use
  Company Number: GB-ABBOTT-11P-167-0887037-00

PATIENT
  Age: 8 Year
  Sex: Male

DRUGS (3)
  1. MOVIPREP [Suspect]
     Indication: CONSTIPATION
  2. VALPROIC ACID [Suspect]
     Indication: EPILEPSY
     Route: 048
     Dates: start: 20111213, end: 20111221
  3. VALPROIC ACID [Suspect]
     Route: 048
     Dates: start: 20111221

REACTIONS (3)
  - MEDICATION RESIDUE [None]
  - DRUG INTERACTION [None]
  - CONVULSION [None]
